FAERS Safety Report 8690842 (Version 2)
Quarter: 2013Q4

REPORT INFORMATION
  Report Type: Spontaneous
  Country: US (occurrence: US)
  Receive Date: 20120729
  Receipt Date: 20131031
  Transmission Date: 20140711
  Serious: Yes (Hospitalization)
  Sender: FDA-Public Use
  Company Number: US-009507513-1207USA009591

PATIENT
  Age: 56 Year
  Sex: Male

DRUGS (4)
  1. JANUVIA [Suspect]
     Dosage: UNK
     Route: 048
  2. DAONIL [Suspect]
     Dosage: UNK
     Route: 048
  3. PRAVASTATIN SODIUM [Suspect]
     Dosage: UNK
     Route: 048
  4. METFORMIN [Concomitant]
     Route: 048

REACTIONS (3)
  - Hyperlipasaemia [Unknown]
  - Hypoglycaemia [Unknown]
  - Overdose [Unknown]
